FAERS Safety Report 9595947 (Version 1)
Quarter: 2013Q4

REPORT INFORMATION
  Report Type: Spontaneous
  Country: TW (occurrence: TW)
  Receive Date: 20131004
  Receipt Date: 20131004
  Transmission Date: 20140711
  Serious: Yes (Hospitalization, Other)
  Sender: FDA-Public Use
  Company Number: TW-ROXANE LABORATORIES, INC.-2013-RO-01619RO

PATIENT
  Age: 50 Year
  Sex: Female

DRUGS (6)
  1. LITHIUM CARBONATE [Suspect]
     Indication: BIPOLAR I DISORDER
     Dosage: 600 MG
  2. VALPROIC ACID [Suspect]
     Indication: BIPOLAR I DISORDER
     Dosage: 1000 MG
  3. VALPROIC ACID [Suspect]
     Dosage: 1400 MG
  4. CARBAMAZEPINE [Concomitant]
     Indication: BIPOLAR DISORDER
     Dosage: 400 MG
  5. RISPERIDONE [Concomitant]
     Indication: BIPOLAR DISORDER
     Dosage: 2 MG
  6. TRILEPTAL [Concomitant]
     Indication: BIPOLAR DISORDER

REACTIONS (5)
  - Toxicity to various agents [Unknown]
  - Renal failure chronic [Unknown]
  - Thrombocytopenia [Recovered/Resolved]
  - Mania [Unknown]
  - Pancytopenia [Unknown]
